FAERS Safety Report 24327048 (Version 1)
Quarter: 2024Q3

REPORT INFORMATION
  Report Type: Spontaneous
  Country: ET (occurrence: ET)
  Receive Date: 20240917
  Receipt Date: 20240917
  Transmission Date: 20241017
  Serious: Yes (Death, Other)
  Sender: STRIDES
  Company Number: ET-STRIDES ARCOLAB LIMITED-2024SP011778

PATIENT
  Age: 18 Year
  Sex: Female

DRUGS (14)
  1. ETOPOSIDE [Suspect]
     Active Substance: ETOPOSIDE
     Indication: Ovarian dysgerminoma stage unspecified
     Dosage: UNK, CYCLICAL, (BEP) CHEMOTHERAPY, 4 CYCLES
     Route: 065
  2. BLEOMYCIN [Suspect]
     Active Substance: BLEOMYCIN SULFATE
     Indication: Ovarian dysgerminoma stage unspecified
     Dosage: UNK, CYCLICAL, (BEP) CHEMOTHERAPY, 4 CYCLES
     Route: 065
  3. CISPLATIN [Suspect]
     Active Substance: CISPLATIN
     Indication: Ovarian dysgerminoma stage unspecified
     Dosage: UNK, CYCLICAL, (BEP) CHEMOTHERAPY, 4 CYCLES
     Route: 065
  4. CISPLATIN [Suspect]
     Active Substance: CISPLATIN
     Indication: Cervix carcinoma recurrent
     Dosage: UNK, CYCLICAL  (2 CYCLES, SECOND-LINE CHEMOTHERAPY)
     Route: 065
  5. IFOSFAMIDE [Suspect]
     Active Substance: IFOSFAMIDE
     Indication: Ovarian dysgerminoma stage unspecified
     Dosage: UNK, CYCLICAL  (2 CYCLES, SECOND-LINE CHEMOTHERAPY)
     Route: 065
  6. IFOSFAMIDE [Suspect]
     Active Substance: IFOSFAMIDE
     Indication: Cervix carcinoma recurrent
  7. PACLITAXEL [Suspect]
     Active Substance: PACLITAXEL
     Indication: Ovarian dysgerminoma stage unspecified
     Dosage: UNK, CYCLICAL (2 CYCLES, SECOND-LINE CHEMOTHERAPY)
     Route: 065
  8. PACLITAXEL [Suspect]
     Active Substance: PACLITAXEL
     Indication: Cervix carcinoma recurrent
  9. VITAMIN B6 [Concomitant]
     Active Substance: PYRIDOXINE HYDROCHLORIDE
     Indication: Neuralgia
     Dosage: UNK
     Route: 065
  10. VITAMIN B6 [Concomitant]
     Active Substance: PYRIDOXINE HYDROCHLORIDE
     Indication: Pain in extremity
  11. VITAMIN B6 [Concomitant]
     Active Substance: PYRIDOXINE HYDROCHLORIDE
     Indication: Abdominal pain
  12. VITAMIN B12 [Concomitant]
     Active Substance: CYANOCOBALAMIN
     Indication: Neuralgia
     Dosage: UNK
     Route: 065
  13. VITAMIN B12 [Concomitant]
     Active Substance: CYANOCOBALAMIN
     Indication: Pain in extremity
  14. VITAMIN B12 [Concomitant]
     Active Substance: CYANOCOBALAMIN
     Indication: Abdominal pain

REACTIONS (3)
  - Sepsis [Fatal]
  - Therapy partial responder [Unknown]
  - Off label use [Unknown]
